FAERS Safety Report 25893544 (Version 1)
Quarter: 2025Q4

REPORT INFORMATION
  Report Type: Spontaneous
  Country: GB (occurrence: GB)
  Receive Date: 20251008
  Receipt Date: 20251008
  Transmission Date: 20260118
  Serious: Yes (Other)
  Sender: HIKMA
  Company Number: None

PATIENT
  Sex: Female

DRUGS (1)
  1. CARBOPLATIN [Suspect]
     Active Substance: CARBOPLATIN
     Indication: Breast cancer
     Dosage: 450 MILLIGRAM
     Route: 065
     Dates: start: 20250626

REACTIONS (9)
  - Musculoskeletal chest pain [Unknown]
  - Contusion [Unknown]
  - Oral pain [Unknown]
  - Rhinalgia [Unknown]
  - Urine output decreased [Unknown]
  - Nervousness [Unknown]
  - Diarrhoea [Unknown]
  - Rash [Unknown]
  - Pain [Unknown]

NARRATIVE: CASE EVENT DATE: 20250922
